FAERS Safety Report 10229341 (Version 1)
Quarter: 2014Q2

REPORT INFORMATION
  Report Type: Spontaneous
  Country: DE (occurrence: DE)
  Receive Date: 20140611
  Receipt Date: 20140611
  Transmission Date: 20141212
  Serious: Yes (Other)
  Sender: FDA-Public Use
  Company Number: DE-UCBSA-2014001342

PATIENT
  Age: 0 Year
  Sex: Female
  Weight: 2.65 kg

DRUGS (2)
  1. KEPPRA [Suspect]
     Dosage: 1000 MG, 2X/DAY (BID)
     Route: 064
     Dates: start: 2014
  2. IBUPROFEN [Concomitant]
     Indication: HEADACHE
     Dosage: 400MG RARELY

REACTIONS (3)
  - Premature baby [Unknown]
  - Foetal exposure during pregnancy [Unknown]
  - Exposure during breast feeding [Unknown]
